FAERS Safety Report 8533052-8 (Version None)
Quarter: 2012Q3

REPORT INFORMATION
  Report Type: 
  Country: None (occurrence: None)
  Receive Date: 20120711
  Receipt Date: 20120626
  Transmission Date: 20120928
  Serious: Yes (Congenital Anomaly, Other)
  Sender: FDA-Public Use
  Company Number: AUR-APL-2012-02916

PATIENT
  Sex: 0
  Weight: 2.3 kg

DRUGS (8)
  1. VIDEX [Suspect]
     Indication: ANTIVIRAL TREATMENT
     Dosage: 250 MG/DAY, TRANSPLACENTAL
     Route: 064
     Dates: start: 20060224, end: 20110810
  2. KALETRA [Suspect]
     Indication: ANTIVIRAL TREATMENT
     Dosage: 4 TAB/CAPS, TRANSPLACENTAL
     Route: 064
     Dates: start: 20110810
  3. NORVIR [Suspect]
     Indication: ANTIVIRAL TREATMENT
     Dosage: 200 MG/DAY, TRANSPLACENTAL
     Route: 064
     Dates: start: 20060224, end: 20110810
  4. ZIDOVUDINE [Suspect]
     Indication: ANTIVIRAL TREATMENT
     Dosage: 400 MG/DAY, TRANSPLACENTAL
     Route: 064
     Dates: start: 20110810
  5. FOLATE (FOLIC ACID) [Concomitant]
  6. LAMIVUDINE [Suspect]
     Indication: ANTIVIRAL TREATMENT
     Dosage: 300 MG/DAY, TRANSPLACENTAL
     Route: 064
     Dates: start: 20021025
  7. CRIXIVAN [Suspect]
     Indication: ANTIVIRAL TREATMENT
     Dosage: 800 MG/DAY, TRANSPLACENTAL
     Route: 064
     Dates: start: 20060224, end: 20110810
  8. KALETRA [Suspect]
     Indication: ANTIVIRAL TREATMENT
     Dosage: 4 TAB/CAPS, TRANSPLACENTAL
     Route: 064
     Dates: start: 20110810

REACTIONS (3)
  - MATERNAL DRUGS AFFECTING FOETUS [None]
  - POLYDACTYLY [None]
  - CLEFT LIP [None]
